FAERS Safety Report 6837851-X (Version None)
Quarter: 2010Q3

REPORT INFORMATION
  Report Type: 
  Country: None (occurrence: None)
  Receive Date: 20100713
  Receipt Date: 20070523
  Transmission Date: 20110219
  Serious: Yes (Hospitalization, Other)
  Sender: FDA-Public Use
  Company Number: US-PFIZER INC-2007042813

PATIENT
  Age: 42 Year
  Sex: Female
  Weight: 93.181 kg

DRUGS (1)
  1. CHANTIX [Suspect]

REACTIONS (1)
  - CONVULSION [None]
